FAERS Safety Report 4595156-4 (Version None)
Quarter: 2005Q1

REPORT INFORMATION
  Report Type: 
  Country: None (occurrence: None)
  Receive Date: 20050224
  Receipt Date: 20050210
  Transmission Date: 20050727
  Serious: Yes (Death)
  Sender: FDA-Public Use
  Company Number: 2005S1000492

PATIENT
  Age: 76 Year
  Sex: Female

DRUGS (7)
  1. CLOZAPINE [Suspect]
     Indication: SCHIZOPHRENIA
     Dosage: 100MG QHS, ORAL
     Route: 048
     Dates: start: 20040201, end: 20041201
  2. OXYCODONE AND ACETAMINOPHEN [Concomitant]
  3. MORPHINE SULFATE [Concomitant]
  4. MAGESTROL ACETATE [Concomitant]
  5. HALOPERIDOL [Concomitant]
  6. RISPERIDONE [Concomitant]
  7. CLONAZEPAM [Concomitant]

REACTIONS (1)
  - DEATH [None]
